FAERS Safety Report 6429726-5 (Version None)
Quarter: 2009Q4

REPORT INFORMATION
  Report Type: 
  Country: None (occurrence: None)
  Receive Date: 20091106
  Receipt Date: 20091030
  Transmission Date: 20100525
  Serious: Yes (Congenital Anomaly, Other)
  Sender: FDA-Public Use
  Company Number: US-BIOGENIDEC-2009BI035623

PATIENT
  Age: 0 Day
  Sex: Female

DRUGS (2)
  1. AVONEX [Suspect]
     Indication: DRUG EXPOSURE DURING PREGNANCY
     Route: 064
     Dates: start: 20000215, end: 20000229
  2. AVONEX [Suspect]
     Route: 030
     Dates: start: 20091017

REACTIONS (4)
  - CARDIAC MURMUR [None]
  - CARDIAC VALVE DISEASE [None]
  - RESPIRATORY DISORDER [None]
  - SMALL FOR DATES BABY [None]
